FAERS Safety Report 13181642 (Version 9)
Quarter: 2017Q2

REPORT INFORMATION
  Report Type: Report from Study
  Country: US (occurrence: US)
  Receive Date: 20170202
  Receipt Date: 20170420
  Transmission Date: 20170830
  Serious: Yes (Other)
  Sender: FDA-Public Use
  Company Number: US-BIOGEN-2017BI00351724

PATIENT
  Age: 37 Year
  Sex: Female

DRUGS (3)
  1. TYSABRI [Suspect]
     Active Substance: NATALIZUMAB
     Dosage: INFUSED OVER 1 HOUR
     Route: 042
  2. TYSABRI [Suspect]
     Active Substance: NATALIZUMAB
     Route: 042
     Dates: end: 20160928
  3. TYSABRI [Suspect]
     Active Substance: NATALIZUMAB
     Indication: MULTIPLE SCLEROSIS
     Dosage: INFUSED OVER 1HR
     Route: 042
     Dates: start: 20160412, end: 20160928

REACTIONS (6)
  - Maternal exposure during pregnancy [Recovered/Resolved]
  - Haemorrhage [Recovered/Resolved]
  - Abortion spontaneous [Recovered/Resolved]
  - Emotional distress [Unknown]
  - Multiple sclerosis relapse [Unknown]
  - Anaemia [Not Recovered/Not Resolved]

NARRATIVE: CASE EVENT DATE: 201702
